FAERS Safety Report 8420990-X (Version None)
Quarter: 2012Q2

REPORT INFORMATION
  Report Type: 
  Country: None (occurrence: None)
  Receive Date: 20120531
  Receipt Date: 20120518
  Transmission Date: 20120825
  Serious: Yes (Other)
  Sender: FDA-Public Use
  Company Number: JP-2012-13605

PATIENT
  Age: 92 Year
  Sex: Female

DRUGS (5)
  1. PIROLACTON (SPIRONOLACTONE) TABLET [Concomitant]
  2. ZOLPIDEM TARTRATE [Concomitant]
  3. SAMSCA [Suspect]
     Indication: FLUID RETENTION
     Dosage: 7.5 MG MILLIGRAM(S), GAM, ORAL
     Route: 048
     Dates: start: 20120119, end: 20120121
  4. ISOSORBIDE DINITRATE [Concomitant]
  5. LASIX [Concomitant]

REACTIONS (5)
  - HYPERNATRAEMIA [None]
  - DEHYDRATION [None]
  - HEPATIC FUNCTION ABNORMAL [None]
  - ASPARTATE AMINOTRANSFERASE INCREASED [None]
  - ALANINE AMINOTRANSFERASE INCREASED [None]
